FAERS Safety Report 7812816-X (Version None)
Quarter: 2011Q4

REPORT INFORMATION
  Report Type: 
  Country: None (occurrence: None)
  Receive Date: 20111013
  Receipt Date: 20111012
  Transmission Date: 20120403
  Serious: Yes (Other)
  Sender: FDA-Public Use
  Company Number: DE-ABBOTT-11P-062-0838932-00

PATIENT
  Sex: Male
  Weight: 86 kg

DRUGS (2)
  1. HUMIRA [Suspect]
     Indication: CROHN'S DISEASE
     Dates: start: 20110118, end: 20110914
  2. ANTIDIABETIC MEDICATION [Concomitant]
     Indication: BLOOD GLUCOSE INCREASED

REACTIONS (2)
  - ILEUS [None]
  - BLOOD GLUCOSE INCREASED [None]
